FAERS Safety Report 20490616 (Version 1)
Quarter: 2022Q1

REPORT INFORMATION
  Report Type: Spontaneous
  Country: US (occurrence: None)
  Receive Date: 20220218
  Receipt Date: 20220218
  Transmission Date: 20220424
  Serious: Yes (Death)
  Sender: FDA-Public Use
  Company Number: None

PATIENT
  Age: 51 Year
  Sex: Female

DRUGS (2)
  1. HERBALS\MITRAGYNINE [Suspect]
     Active Substance: HERBALS\MITRAGYNINE
     Indication: Substance use
     Dates: start: 20190601, end: 20211215
  2. HERBALS\MITRAGYNINE [Suspect]
     Active Substance: HERBALS\MITRAGYNINE
     Indication: Pain management
     Route: 048
     Dates: start: 20190601, end: 20211215

REACTIONS (13)
  - Substance use [None]
  - Overdose [None]
  - Accidental death [None]
  - Cognitive disorder [None]
  - Dysphonia [None]
  - Dizziness [None]
  - Weight decreased [None]
  - Impaired work ability [None]
  - Vomiting [None]
  - Nausea [None]
  - Wernicke^s encephalopathy [None]
  - Decreased appetite [None]
  - Pulse abnormal [None]

NARRATIVE: CASE EVENT DATE: 20211215
